FAERS Safety Report 22954604 (Version 2)
Quarter: 2023Q4

REPORT INFORMATION
  Report Type: Spontaneous
  Country: DE (occurrence: DE)
  Receive Date: 20230918
  Receipt Date: 20231027
  Transmission Date: 20240109
  Serious: Yes (Life-Threatening, Hospitalization)
  Sender: FDA-Public Use
  Company Number: DE-BoehringerIngelheim-2023-BI-261646

PATIENT
  Age: 65 Year
  Sex: Male

DRUGS (1)
  1. OFEV [Suspect]
     Active Substance: NINTEDANIB
     Indication: Rheumatoid arthritis-associated interstitial lung disease

REACTIONS (3)
  - Acute kidney injury [Recovered/Resolved]
  - Sepsis [Unknown]
  - Nephropathy toxic [Recovered/Resolved]
